FAERS Safety Report 14330375 (Version 3)
Quarter: 2018Q1

REPORT INFORMATION
  Report Type: Spontaneous
  Country: DE (occurrence: DE)
  Receive Date: 20171227
  Receipt Date: 20180320
  Transmission Date: 20180509
  Serious: Yes (Hospitalization)
  Sender: FDA-Public Use
  Company Number: DE-SUN PHARMACEUTICAL INDUSTRIES LTD-2017RR-157665

PATIENT
  Age: 1 Year
  Sex: Male
  Weight: 11 kg

DRUGS (3)
  1. CLARITHROMYCIN BASICS 250MG/5ML GRANULAT Z. HERSTELLUNG EINER SUSPENS [Suspect]
     Active Substance: CLARITHROMYCIN
     Indication: DACRYOCANALICULITIS
  2. CLARITHROMYCIN BASICS 250MG/5ML GRANULAT Z. HERSTELLUNG EINER SUSPENS [Suspect]
     Active Substance: CLARITHROMYCIN
     Indication: OTITIS MEDIA
     Dosage: 1X3 ML, UNK
     Route: 048
  3. CLARITHROMYCIN BASICS 250MG/5ML GRANULAT Z. HERSTELLUNG EINER SUSPENS [Suspect]
     Active Substance: CLARITHROMYCIN
     Indication: SINUSITIS

REACTIONS (5)
  - Nausea [Recovered/Resolved]
  - Vomiting [Recovered/Resolved]
  - Product taste abnormal [Unknown]
  - Food refusal [Recovered/Resolved]
  - Urinary retention [Recovered/Resolved]

NARRATIVE: CASE EVENT DATE: 20171123
